FAERS Safety Report 20612200 (Version 1)
Quarter: 2022Q1

REPORT INFORMATION
  Report Type: Spontaneous
  Country: US (occurrence: None)
  Receive Date: 20220318
  Receipt Date: 20220318
  Transmission Date: 20220423
  Serious: Yes (Hospitalization)
  Sender: FDA-Public Use
  Company Number: None

PATIENT
  Sex: Female

DRUGS (1)
  1. PIQRAY [Suspect]
     Active Substance: ALPELISIB
     Indication: Breast cancer
     Dosage: FREQUENCY : DAILY;?
     Route: 048

REACTIONS (4)
  - Therapy interrupted [None]
  - Eye inflammation [None]
  - Eye pain [None]
  - Pain [None]
